FAERS Safety Report 6796156-6 (Version None)
Quarter: 2010Q2

REPORT INFORMATION
  Report Type: 
  Country: None (occurrence: None)
  Receive Date: 20100625
  Receipt Date: 20100617
  Transmission Date: 20101027
  Serious: Yes (Hospitalization, Other)
  Sender: FDA-Public Use
  Company Number: CA-ABBOTT-10P-028-0652486-00

PATIENT
  Sex: Female
  Weight: 127.12 kg

DRUGS (2)
  1. HUMIRA [Suspect]
     Indication: CROHN'S DISEASE
     Dates: start: 20100521
  2. HUMIRA [Suspect]
     Dosage: 80MG AT WEEK TWO
     Dates: start: 20100617

REACTIONS (4)
  - ABDOMINAL PAIN [None]
  - CROHN'S DISEASE [None]
  - DIARRHOEA [None]
  - HAEMATOCHEZIA [None]
